FAERS Safety Report 8956415 (Version 1)
Quarter: 2012Q4

REPORT INFORMATION
  Report Type: 
  Country: US (occurrence: US)
  Receive Date: 20121210
  Receipt Date: 20121210
  Transmission Date: 20130627
  Serious: Yes (Hospitalization)
  Sender: FDA-Public Use
  Company Number: US-SANOFI-AVENTIS-2012SA087477

PATIENT
  Sex: Female

DRUGS (1)
  1. AUBAGIO [Suspect]
     Route: 065
     Dates: start: 20121025, end: 201211

REACTIONS (6)
  - Arthropathy [Unknown]
  - Renal disorder [Unknown]
  - Blood creatinine increased [Unknown]
  - Abdominal pain [Not Recovered/Not Resolved]
  - Rash generalised [Recovered/Resolved]
  - Abdominal distension [Unknown]
